FAERS Safety Report 5488222-2 (Version None)
Quarter: 2007Q4

REPORT INFORMATION
  Report Type: 
  Country: None (occurrence: None)
  Receive Date: 20071017
  Receipt Date: 20071015
  Transmission Date: 20080405
  Serious: Yes (Hospitalization)
  Sender: FDA-Public Use
  Company Number: A0656898A

PATIENT
  Age: 43 Year
  Sex: Male

DRUGS (4)
  1. GOODYS EXTRA STRENGTH HEADACHE POWDER [Suspect]
     Indication: MIGRAINE
  2. SYNTHROID [Concomitant]
  3. LEXAPRO [Concomitant]
  4. NEXIUM [Concomitant]
     Indication: GASTROOESOPHAGEAL REFLUX DISEASE

REACTIONS (18)
  - CIRCULATORY COLLAPSE [None]
  - DYSPNOEA [None]
  - FATIGUE [None]
  - HAEMATEMESIS [None]
  - HAEMATOLOGY TEST ABNORMAL [None]
  - HAEMOPTYSIS [None]
  - HYPERHIDROSIS [None]
  - HYPOTENSION [None]
  - INJURY [None]
  - LOSS OF CONSCIOUSNESS [None]
  - MALAISE [None]
  - MOBILITY DECREASED [None]
  - MYOCARDIAL INFARCTION [None]
  - NAUSEA [None]
  - TACHYCARDIA [None]
  - TREMOR [None]
  - ULCER HAEMORRHAGE [None]
  - VOMITING [None]
